FAERS Safety Report 11693768 (Version 23)
Quarter: 2019Q2

REPORT INFORMATION
  Report Type: Spontaneous
  Country: US (occurrence: US)
  Receive Date: 20151103
  Receipt Date: 20190513
  Transmission Date: 20190711
  Serious: Yes (Hospitalization, Other)
  Sender: FDA-Public Use
  Company Number: US-ACTELION PHARMACEUTICALS US, INC.-A-US2015-126541

PATIENT
  Age: 51 Year
  Sex: Female
  Weight: 54.88 kg

DRUGS (14)
  1. VALIUM [Concomitant]
     Active Substance: DIAZEPAM
     Indication: DIZZINESS
     Dosage: 5 MG, Q6HRS PRN
  2. OPSUMIT [Suspect]
     Active Substance: MACITENTAN
     Indication: PULMONARY HYPERTENSION
     Dosage: 10 MG, QD
     Route: 048
     Dates: start: 20151022
  3. PRILOSEC [Concomitant]
     Active Substance: OMEPRAZOLE MAGNESIUM
     Dosage: 40 MG, UNK
     Dates: start: 2008
  4. WELLBUTRIN [Concomitant]
     Active Substance: BUPROPION HYDROCHLORIDE
     Dosage: 150 MG, BID
     Dates: start: 2013
  5. POTASSIUM CHLORIDE. [Concomitant]
     Active Substance: POTASSIUM CHLORIDE
     Dosage: UNK
     Dates: start: 2015
  6. PRAVASTATIN. [Concomitant]
     Active Substance: PRAVASTATIN
     Dosage: UNK
     Dates: start: 201208
  7. FLUOXETINE [Concomitant]
     Active Substance: FLUOXETINE HYDROCHLORIDE
  8. GABAPENTIN. [Concomitant]
     Active Substance: GABAPENTIN
     Dosage: UNK
     Dates: start: 2015
  9. REVATIO [Concomitant]
     Active Substance: SILDENAFIL CITRATE
  10. FLOLAN [Suspect]
     Active Substance: EPOPROSTENOL SODIUM
     Dosage: 22 NG/KG, PER MIN
     Route: 042
  11. PROZAC [Concomitant]
     Active Substance: FLUOXETINE HYDROCHLORIDE
     Dosage: 40 MG, TID
  12. NEURONTIN [Concomitant]
     Active Substance: GABAPENTIN
     Dosage: 100 MG, TID
  13. MULTIVITAMIN [Concomitant]
     Active Substance: VITAMINS
  14. FLOLAN [Suspect]
     Active Substance: EPOPROSTENOL SODIUM
     Indication: PULMONARY HYPERTENSION
     Dosage: 35.5 NG/KG, PER MIN
     Route: 042
     Dates: start: 19990112

REACTIONS (31)
  - Catheter site discharge [Unknown]
  - Dizziness [Unknown]
  - Catheter site erythema [Unknown]
  - Muscular weakness [Recovered/Resolved]
  - Hypotension [Unknown]
  - Pain in extremity [Recovered/Resolved]
  - Hypoaesthesia [Recovered/Resolved]
  - Subarachnoid haemorrhage [Recovered/Resolved]
  - Right ventricular failure [Recovered/Resolved]
  - Oedema [Recovered/Resolved]
  - Disorientation [Not Recovered/Not Resolved]
  - Headache [Unknown]
  - Fluid overload [Recovered/Resolved]
  - Cough [Not Recovered/Not Resolved]
  - Device malfunction [Not Recovered/Not Resolved]
  - Contusion [Recovered/Resolved]
  - Cerebral haemorrhage [Recovered/Resolved]
  - Nausea [Unknown]
  - Pulmonary arterial hypertension [Unknown]
  - Catheter site swelling [Unknown]
  - Subdural haematoma [Recovered/Resolved]
  - Seizure [Recovered/Resolved]
  - Chest pain [Unknown]
  - Eye pain [Not Recovered/Not Resolved]
  - Fall [Recovered/Resolved]
  - Nervous system disorder [Unknown]
  - Vascular device infection [Unknown]
  - Presyncope [Not Recovered/Not Resolved]
  - Syncope [Recovered/Resolved]
  - Ocular hyperaemia [Not Recovered/Not Resolved]
  - Facial pain [Recovered/Resolved]

NARRATIVE: CASE EVENT DATE: 20151026
